FAERS Safety Report 5215064-5 (Version None)
Quarter: 2007Q1

REPORT INFORMATION
  Report Type: 
  Country: None (occurrence: None)
  Receive Date: 20070122
  Receipt Date: 20070112
  Transmission Date: 20070707
  Serious: Yes (Hospitalization)
  Sender: FDA-Public Use
  Company Number: DE-PFIZER INC-2006149860

PATIENT
  Sex: Male
  Weight: 75 kg

DRUGS (5)
  1. TAFIL [Suspect]
     Indication: ANXIETY
     Route: 048
  2. TAFIL [Suspect]
     Indication: SOMATISATION DISORDER
  3. METOPROLOL SUCCINATE [Concomitant]
  4. OMEPRAZOLE [Concomitant]
  5. ALL OTHER THERAPEUTIC PRODUCTS [Concomitant]

REACTIONS (3)
  - BLOOD CREATINE PHOSPHOKINASE INCREASED [None]
  - MYALGIA [None]
  - MYOCARDIAL INFARCTION [None]
